FAERS Safety Report 9815491 (Version 2)
Quarter: 2014Q1

REPORT INFORMATION
  Report Type: Spontaneous
  Country: US (occurrence: US)
  Receive Date: 20140114
  Receipt Date: 20140207
  Transmission Date: 20141002
  Serious: Yes (Other)
  Sender: FDA-Public Use
  Company Number: US-PFIZER INC-2014004981

PATIENT
  Age: 75 Year
  Sex: Male

DRUGS (1)
  1. SUTENT [Suspect]
     Dosage: 50 MG, 1X/DAY (4/2 CYCLIC)
     Route: 048
     Dates: start: 20131203, end: 20131231

REACTIONS (3)
  - Electrocardiogram QT prolonged [Unknown]
  - Atrial flutter [Unknown]
  - Heart rate increased [Recovered/Resolved]
